FAERS Safety Report 7241702-1 (Version None)
Quarter: 2011Q1

REPORT INFORMATION
  Report Type: 
  Country: None (occurrence: None)
  Receive Date: 20110124
  Receipt Date: 20110114
  Transmission Date: 20110831
  Serious: Yes (Hospitalization)
  Sender: FDA-Public Use
  Company Number: PHHO2010AU16803

PATIENT
  Sex: Male
  Weight: 103 kg

DRUGS (4)
  1. NO TREATMENT RECEIVED [Suspect]
     Indication: RENAL TRANSPLANT
     Dosage: NO TREATMENT
  2. PREDNISONE [Suspect]
     Indication: PROPHYLAXIS AGAINST TRANSPLANT REJECTION
     Dosage: 10 MG, QD
     Route: 048
     Dates: start: 20090203
  3. CYCLOSPORINE [Suspect]
     Indication: RENAL TRANSPLANT
     Dosage: 150 MG
     Route: 048
     Dates: start: 20100707
  4. MYFORTIC [Suspect]
     Indication: RENAL TRANSPLANT
     Dosage: 720 MG, BID
     Route: 048
     Dates: start: 20091202

REACTIONS (9)
  - DEVICE RELATED INFECTION [None]
  - STAPHYLOCOCCAL INFECTION [None]
  - ARTHRITIS [None]
  - DEBRIDEMENT [None]
  - CYST [None]
  - HAEMATOMA [None]
  - INFECTION [None]
  - INCISIONAL DRAINAGE [None]
  - CONCOMITANT DISEASE PROGRESSION [None]
